FAERS Safety Report 12715813 (Version 6)
Quarter: 2018Q2

REPORT INFORMATION
  Report Type: Spontaneous
  Country: US (occurrence: US)
  Receive Date: 20160906
  Receipt Date: 20180606
  Transmission Date: 20180711
  Serious: No
  Sender: FDA-Public Use
  Company Number: US-PFIZER INC-2016417413

PATIENT
  Age: 68 Year
  Sex: Female
  Weight: 82 kg

DRUGS (2)
  1. XELJANZ [Suspect]
     Active Substance: TOFACITINIB CITRATE
     Indication: ARTHRITIS
     Dosage: 5 MG, 2X/DAY
     Dates: start: 2015, end: 20180417
  2. XELJANZ [Suspect]
     Active Substance: TOFACITINIB CITRATE
     Indication: MIXED CONNECTIVE TISSUE DISEASE

REACTIONS (3)
  - Malaise [Unknown]
  - Influenza [Recovered/Resolved with Sequelae]
  - Asthenia [Unknown]

NARRATIVE: CASE EVENT DATE: 20171214
